FAERS Safety Report 9414163 (Version 3)
Quarter: 2013Q3

REPORT INFORMATION
  Report Type: Spontaneous
  Country: DE (occurrence: None)
  Receive Date: 20130711
  Receipt Date: 20130830
  Transmission Date: 20140515
  Serious: Yes (Hospitalization)
  Sender: FDA-Public Use
  Company Number: SYM-2013-04908

PATIENT
  Age: 76 Year
  Sex: Male

DRUGS (11)
  1. 5-FU [Suspect]
     Indication: COLORECTAL CANCER METASTATIC
     Route: 040
     Dates: start: 20130527, end: 20130527
  2. AFLIBERCEPT [Suspect]
     Indication: COLORECTAL CANCER METASTATIC
     Route: 042
     Dates: start: 20130527, end: 20130527
  3. IRINOTECAN [Suspect]
     Indication: COLORECTAL CANCER METASTATIC
     Route: 042
     Dates: start: 20130527, end: 20130527
  4. LEUCOVORIN [Suspect]
     Indication: COLORECTAL CANCER METASTATIC
     Route: 042
     Dates: start: 20130527, end: 20130527
  5. HEPARIN GROUP (HEPARIN GROUP) [Concomitant]
  6. ANALGESICS (ANALGESICS) [Concomitant]
  7. SEROTONIN ANTAGONISTS (SEROTONIN ANTAGONISTS) [Concomitant]
  8. ALIZAPRIDE (ALIZAPRIDE)(ALIZAPRIDE) [Concomitant]
  9. ATROPINE SULFATE (ATROPINE SULFATE)(ATROPINE SULFATE) [Concomitant]
  10. ANTICHOLINERGICS (ANTICHOLINERGICS) [Concomitant]
  11. ANTISEPTICS (ANTISEPTICS) [Concomitant]

REACTIONS (5)
  - Peripheral ischaemia [None]
  - Skin discolouration [None]
  - Pruritus [None]
  - Arterial occlusive disease [None]
  - Arterial thrombosis [None]
